FAERS Safety Report 22924547 (Version 11)
Quarter: 2024Q2

REPORT INFORMATION
  Report Type: Report from Study
  Country: US (occurrence: US)
  Receive Date: 20230908
  Receipt Date: 20240627
  Transmission Date: 20240715
  Serious: Yes (Other)
  Sender: FDA-Public Use
  Company Number: US-SUN PHARMACEUTICAL INDUSTRIES LTD-2023R1-407731

PATIENT
  Age: 68 Year
  Sex: Male
  Weight: 87.1 kg

DRUGS (1)
  1. BOSENTAN [Suspect]
     Active Substance: BOSENTAN
     Indication: Pulmonary arterial hypertension
     Dosage: UNK
     Route: 065

REACTIONS (17)
  - HIV infection [Unknown]
  - CD4 lymphocyte percentage decreased [Unknown]
  - CD8 lymphocyte percentage increased [Not Recovered/Not Resolved]
  - CD4/CD8 ratio decreased [Unknown]
  - Haematocrit decreased [Recovering/Resolving]
  - Haemoglobin decreased [Recovering/Resolving]
  - Red blood cell count decreased [Recovering/Resolving]
  - Eosinophilia [Not Recovered/Not Resolved]
  - Carbon dioxide decreased [Recovered/Resolved]
  - Blood urea increased [Unknown]
  - Blood glucose increased [Unknown]
  - Eosinophil count increased [Unknown]
  - CD4 lymphocytes decreased [Not Recovered/Not Resolved]
  - Hyperlipidaemia [Unknown]
  - Blood chloride increased [Unknown]
  - Blood triglycerides increased [Unknown]
  - High density lipoprotein decreased [Unknown]

NARRATIVE: CASE EVENT DATE: 20230214
